FAERS Safety Report 5798104-4 (Version None)
Quarter: 2008Q3

REPORT INFORMATION
  Report Type: 
  Country: None (occurrence: None)
  Receive Date: 20080702
  Receipt Date: 20080623
  Transmission Date: 20090109
  Serious: Yes (Other)
  Sender: FDA-Public Use
  Company Number: US-BAYER-200812598BCC

PATIENT
  Age: 91 Year
  Sex: Female
  Weight: 63 kg

DRUGS (1)
  1. ASPIRIN [Suspect]
     Indication: MIGRAINE
     Dosage: AS USED: 325 MG  UNIT DOSE: 325 MG
     Route: 048

REACTIONS (3)
  - STOMACH DISCOMFORT [None]
  - SYNCOPE [None]
  - VOMITING [None]
